FAERS Safety Report 9264852 (Version 2)
Quarter: 2013Q2

REPORT INFORMATION
  Report Type: Spontaneous
  Country: US (occurrence: None)
  Receive Date: 20130426
  Receipt Date: 20130514
  Transmission Date: 20140414
  Serious: Yes (Other)
  Sender: FDA-Public Use
  Company Number: JPI-P-031264

PATIENT
  Age: 52 Year
  Sex: Female
  Weight: 81.65 kg

DRUGS (4)
  1. XYREM [Suspect]
     Indication: NARCOLEPSY
     Dosage: UNKNOWN ORAL
     Route: 048
     Dates: start: 200409
  2. XYREM [Suspect]
     Indication: SOMNOLENCE
     Dosage: UNKNOWN ORAL
     Route: 048
     Dates: start: 200409
  3. DESVENLAFAXINE [Concomitant]
  4. CLONAZEPAM [Concomitant]

REACTIONS (5)
  - Fall [None]
  - Dreamy state [None]
  - Incoherent [None]
  - Unresponsive to stimuli [None]
  - Middle insomnia [None]
